FAERS Safety Report 10679194 (Version 1)
Quarter: 2014Q4

REPORT INFORMATION
  Report Type: Spontaneous
  Country: US (occurrence: US)
  Receive Date: 20141229
  Receipt Date: 20141229
  Transmission Date: 20150529
  Serious: No
  Sender: FDA-Public Use
  Company Number: US-009507513-1412USA009468

PATIENT

DRUGS (1)
  1. PROVENTIL [Suspect]
     Active Substance: ALBUTEROL
     Dosage: TWO INHALATIONS EVERY 4 TO 6 HOURS
     Route: 055

REACTIONS (3)
  - Underdose [Unknown]
  - Product container issue [Unknown]
  - No adverse event [Unknown]
